FAERS Safety Report 11613639 (Version 3)
Quarter: 2015Q4

REPORT INFORMATION
  Report Type: Spontaneous
  Country: US (occurrence: US)
  Receive Date: 20151008
  Receipt Date: 20151109
  Transmission Date: 20160304
  Serious: Yes (Hospitalization, Other)
  Sender: FDA-Public Use
  Company Number: US-GLAXOSMITHKLINE-US2015GSK141238

PATIENT
  Age: 59 Year
  Sex: Male

DRUGS (5)
  1. SPIRIVA [Concomitant]
     Active Substance: TIOTROPIUM BROMIDE MONOHYDRATE
  2. CALCIUM [Concomitant]
     Active Substance: CALCIUM
  3. ADVAIR HFA [Suspect]
     Active Substance: FLUTICASONE PROPIONATE\SALMETEROL XINAFOATE
     Indication: CHRONIC OBSTRUCTIVE PULMONARY DISEASE
     Dosage: 1 PUFF(S), BID
     Route: 055
  4. POTASSIUM [Concomitant]
     Active Substance: POTASSIUM
  5. MAGNESIUM [Concomitant]
     Active Substance: MAGNESIUM

REACTIONS (7)
  - Tooth fracture [Not Recovered/Not Resolved]
  - Thyroidectomy [Recovered/Resolved]
  - Hip fracture [Recovered/Resolved]
  - Hospitalisation [Unknown]
  - Condition aggravated [Unknown]
  - Tooth loss [Unknown]
  - Tooth disorder [Unknown]

NARRATIVE: CASE EVENT DATE: 201507
